FAERS Safety Report 10267829 (Version 1)
Quarter: 2014Q2

REPORT INFORMATION
  Report Type: Spontaneous
  Country: US (occurrence: US)
  Receive Date: 20140630
  Receipt Date: 20140630
  Transmission Date: 20141212
  Serious: No
  Sender: FDA-Public Use
  Company Number: US-GLAXOSMITHKLINE-A1056422A

PATIENT
  Age: 27 Year
  Sex: Female

DRUGS (4)
  1. RANITIDINE [Suspect]
     Indication: ILL-DEFINED DISORDER
     Dosage: 300MG TWICE PER DAY
     Route: 048
     Dates: start: 20120702, end: 201309
  2. PRISTIQ [Concomitant]
  3. ALIGN [Concomitant]
  4. ETHINYL ESTRADIOL + LEVONORGESTREL [Concomitant]

REACTIONS (4)
  - Pain [Recovered/Resolved]
  - Blood urine present [Recovered/Resolved]
  - Drug ineffective [Unknown]
  - Off label use [Recovered/Resolved]
